FAERS Safety Report 10095482 (Version 2)
Quarter: 2014Q2

REPORT INFORMATION
  Report Type: Spontaneous
  Country: US (occurrence: US)
  Receive Date: 20140422
  Receipt Date: 20140522
  Transmission Date: 20141212
  Serious: Yes (Life-Threatening, Congenital Anomaly, Other)
  Sender: FDA-Public Use
  Company Number: US-PFIZER INC-2014109328

PATIENT
  Sex: Female

DRUGS (5)
  1. ZOLOFT [Suspect]
     Dosage: UNK
     Route: 064
     Dates: start: 200202, end: 200212
  2. ZOLOFT [Suspect]
     Dosage: UNK
     Route: 064
     Dates: start: 200302, end: 200404
  3. PRENATAL VITAMINS [Concomitant]
     Dosage: UNK
     Route: 064
  4. FOLIC ACID SUPPLEMENTS [Concomitant]
     Dosage: UNK
     Route: 064
  5. IRON SUPPLEMENTS [Concomitant]
     Dosage: UNK
     Route: 064

REACTIONS (6)
  - Maternal exposure during pregnancy [Unknown]
  - Congenital anomaly [Unknown]
  - Wolff-Parkinson-White syndrome congenital [Unknown]
  - Cardiomegaly [Unknown]
  - Tachycardia [Unknown]
  - Cardiac murmur [Unknown]
